FAERS Safety Report 7190495-5 (Version None)
Quarter: 2010Q4

REPORT INFORMATION
  Report Type: 
  Country: None (occurrence: None)
  Receive Date: 20101221
  Receipt Date: 20101221
  Transmission Date: 20110411
  Serious: Yes (Other)
  Sender: FDA-Public Use
  Company Number: None

PATIENT
  Age: 55 Year
  Sex: Male
  Weight: 83.9154 kg

DRUGS (1)
  1. INTELENCE [Suspect]
     Indication: HIV INFECTION
     Dosage: 400MG TWICE A DAY PO
     Route: 048
     Dates: start: 20100311, end: 20101203

REACTIONS (1)
  - APHTHOUS STOMATITIS [None]
